FAERS Safety Report 20649909 (Version 2)
Quarter: 2022Q3

REPORT INFORMATION
  Report Type: Spontaneous
  Country: CA (occurrence: CA)
  Receive Date: 20220329
  Receipt Date: 20220906
  Transmission Date: 20221027
  Serious: Yes (Other)
  Sender: FDA-Public Use
  Company Number: CA-PFIZER INC-202200463141

PATIENT
  Age: 40 Year
  Sex: Female

DRUGS (2)
  1. METHOTREXATE SODIUM [Suspect]
     Active Substance: METHOTREXATE SODIUM
     Indication: Colitis ulcerative
     Dosage: 1 DF, DOSAGE INFORMATION NOT AVAILABLE
     Route: 065
  2. INFLECTRA [Concomitant]
     Active Substance: INFLIXIMAB-DYYB
     Indication: Colitis ulcerative
     Dosage: 600 MG EVERY 6 WEEKS
     Route: 042
     Dates: start: 20220419, end: 20220419

REACTIONS (5)
  - Haematochezia [Not Recovered/Not Resolved]
  - Upper respiratory tract infection [Not Recovered/Not Resolved]
  - Therapeutic product effect incomplete [Unknown]
  - Muscle spasms [Unknown]
  - Off label use [Unknown]

NARRATIVE: CASE EVENT DATE: 20220101
